FAERS Safety Report 9247347 (Version 1)
Quarter: 2013Q2

REPORT INFORMATION
  Report Type: Spontaneous
  Country: JP (occurrence: JP)
  Receive Date: 20130423
  Receipt Date: 20130426
  Transmission Date: 20140414
  Serious: No
  Sender: FDA-Public Use
  Company Number: JP-009507513-1304JPN007228

PATIENT
  Age: 26 Month
  Sex: Male
  Weight: 14.3 kg

DRUGS (9)
  1. DECADRON ELIXIR [Suspect]
     Dosage: 0.7 MG, ONE TIME DOSE, 1.4MG DAILY
     Route: 048
     Dates: start: 20130409, end: 20130410
  2. MEIACT [Concomitant]
     Dosage: 150MG DAILY
     Route: 048
     Dates: start: 20130409, end: 20130410
  3. SHO-SEIRYU-TO [Concomitant]
     Dosage: 1.11G DAILY
     Route: 048
     Dates: start: 20130405, end: 20130408
  4. WIDECILLIN [Concomitant]
     Dosage: 561 MG DAILY
     Route: 048
     Dates: start: 20130406, end: 20130409
  5. BIOFERMIN (BACILLUS SUBTILIS (+) LACTOBACILLUS ACIDOPHILUS (+) STREPTO [Concomitant]
     Dosage: 1.5G, DAILY
     Route: 048
     Dates: start: 20130406, end: 20130409
  6. MUCODYNE [Concomitant]
     Dosage: 450 MG DAILY
     Route: 048
     Dates: start: 20130406, end: 20130409
  7. NEUZYM [Concomitant]
     Dosage: 45 MG DAILY
     Route: 048
     Dates: start: 20130406, end: 20130409
  8. ASVERIN (TIPEPIDINE HIBENZATE) [Concomitant]
     Dosage: 30 MG DAILY
     Route: 048
     Dates: start: 20130406, end: 20130409
  9. HOKUNALIN [Concomitant]
     Dosage: 2 MG DAILY
     Route: 062
     Dates: start: 20130410

REACTIONS (2)
  - Hypothermia [Recovering/Resolving]
  - Hyperhidrosis [Recovering/Resolving]
